FAERS Safety Report 11081102 (Version 4)
Quarter: 2020Q2

REPORT INFORMATION
  Report Type: Spontaneous
  Country: US (occurrence: US)
  Receive Date: 20150501
  Receipt Date: 20200615
  Transmission Date: 20200713
  Serious: No
  Sender: FDA-Public Use
  Company Number: US-PFIZER INC-2015151192

PATIENT
  Age: 41 Year
  Sex: Female

DRUGS (2)
  1. RELPAX [Suspect]
     Active Substance: ELETRIPTAN HYDROBROMIDE
     Indication: HEADACHE
     Dosage: 40 MG, AS NEEDED (TAKE 1 BY MOUTH DAILY OR TWICE A DAY)
     Route: 048
  2. RELPAX [Suspect]
     Active Substance: ELETRIPTAN HYDROBROMIDE
     Indication: MIGRAINE
     Dosage: 20 MG, AS NEEDED
     Route: 048

REACTIONS (2)
  - Product dispensing error [Unknown]
  - Feeling abnormal [Unknown]
